FAERS Safety Report 4818738-0 (Version None)
Quarter: 2005Q4

REPORT INFORMATION
  Report Type: 
  Country: None (occurrence: None)
  Receive Date: 20051101
  Receipt Date: 20051018
  Transmission Date: 20060501
  Serious: Yes (Hospitalization)
  Sender: FDA-Public Use
  Company Number: 2005BI018034

PATIENT
  Age: 50 Year
  Sex: Female
  Weight: 58.9676 kg

DRUGS (2)
  1. AVONEX [Suspect]
     Indication: MULTIPLE SCLEROSIS
     Dosage: 30 UG; QW; IM
     Route: 030
     Dates: start: 19930101, end: 20030801
  2. AVONEX [Suspect]
     Indication: MULTIPLE SCLEROSIS
     Dosage: 30 UG; QW; IM
     Route: 030
     Dates: start: 20030801

REACTIONS (16)
  - AMNESIA [None]
  - ASTHENIA [None]
  - COMA [None]
  - DYSLIPIDAEMIA [None]
  - HYPERTENSION [None]
  - INCONTINENCE [None]
  - ISCHAEMIC CARDIOMYOPATHY [None]
  - MITRAL VALVE INCOMPETENCE [None]
  - MYOCARDIAL INFARCTION [None]
  - PNEUMONIA ASPIRATION [None]
  - PNEUMONIA STREPTOCOCCAL [None]
  - RESPIRATORY ARREST [None]
  - SPUTUM CULTURE POSITIVE [None]
  - STATUS EPILEPTICUS [None]
  - STRESS [None]
  - TRICUSPID VALVE INCOMPETENCE [None]
